FAERS Safety Report 4660296-8 (Version None)
Quarter: 2005Q2

REPORT INFORMATION
  Report Type: 
  Country: None (occurrence: None)
  Receive Date: 20050511
  Receipt Date: 20050511
  Transmission Date: 20051028
  Serious: Yes (Hospitalization)
  Sender: FDA-Public Use
  Company Number: None

PATIENT
  Age: 45 Year
  Sex: Female
  Weight: 72.6 kg

DRUGS (10)
  1. IBUPROFEN [Suspect]
     Indication: PAIN
     Dosage: 600MG PO QID
     Route: 048
  2. TORADOL [Suspect]
     Indication: PAIN
     Dosage: 30 MG IV Q 6 HOURS    6 DOSES
     Route: 042
  3. DEPAKOTE [Concomitant]
  4. PRIMIDONE [Concomitant]
  5. MULTI-VITAMIN [Concomitant]
  6. MINOCYCLINE HCL [Concomitant]
  7. LANTUS [Concomitant]
  8. HUMALOG [Concomitant]
  9. AMBIEN [Concomitant]
  10. STOOL SOFTENERS [Concomitant]

REACTIONS (4)
  - GASTRITIS EROSIVE [None]
  - HAEMATEMESIS [None]
  - HAEMORRHAGE [None]
  - LETHARGY [None]
